FAERS Safety Report 7644555-2 (Version None)
Quarter: 2011Q3

REPORT INFORMATION
  Report Type: 
  Country: None (occurrence: None)
  Receive Date: 20110729
  Receipt Date: 20110718
  Transmission Date: 20111222
  Serious: Yes (Hospitalization)
  Sender: FDA-Public Use
  Company Number: DK-PFIZER INC-2011161716

PATIENT
  Age: 71 Year
  Sex: Female
  Weight: 66 kg

DRUGS (2)
  1. SUNITINIB MALATE [Suspect]
     Dosage: 50 MG, UNK
     Dates: start: 20070413, end: 20070510
  2. WARFARIN SODIUM [Interacting]

REACTIONS (3)
  - DRUG INTERACTION [None]
  - CONSTIPATION [None]
  - RECTAL HAEMORRHAGE [None]
